FAERS Safety Report 7350532-1 (Version None)
Quarter: 2011Q1

REPORT INFORMATION
  Report Type: 
  Country: None (occurrence: None)
  Receive Date: 20110309
  Receipt Date: 20110309
  Transmission Date: 20110831
  Serious: Yes (Other)
  Sender: FDA-Public Use
  Company Number: None

PATIENT
  Age: 27 Year
  Sex: Female
  Weight: 63.5036 kg

DRUGS (2)
  1. SINGULAIR [Suspect]
     Indication: ASTHMA
     Dosage: 10 MG-ONE TABLET 1 PER DAY SL
     Route: 060
     Dates: start: 20110218, end: 20110306
  2. SINGULAIR [Suspect]
     Indication: RETINITIS
     Dosage: 10 MG-ONE TABLET 1 PER DAY SL
     Route: 060
     Dates: start: 20110218, end: 20110306

REACTIONS (5)
  - INSOMNIA [None]
  - MUSCLE TWITCHING [None]
  - FEAR [None]
  - PARANOIA [None]
  - THIRST [None]
